FAERS Safety Report 19881616 (Version 1)
Quarter: 2021Q3

REPORT INFORMATION
  Report Type: Spontaneous
  Country: CN (occurrence: CN)
  Receive Date: 20210924
  Receipt Date: 20210924
  Transmission Date: 20211014
  Serious: Yes (Other)
  Sender: FDA-Public Use
  Company Number: CN-SLATE RUN PHARMACEUTICALS-21CN000689

PATIENT

DRUGS (2)
  1. CINACALCET HYDROCHLORIDE. [Suspect]
     Active Substance: CINACALCET HYDROCHLORIDE
     Indication: BLOOD PARATHYROID HORMONE INCREASED
     Dosage: UNK
  2. CALCITRIOL. [Concomitant]
     Active Substance: CALCITRIOL
     Indication: BLOOD PARATHYROID HORMONE INCREASED

REACTIONS (9)
  - Drug effect less than expected [Unknown]
  - Thyroid mass [Unknown]
  - Chronic kidney disease-mineral and bone disorder [Recovering/Resolving]
  - High turnover osteopathy [Recovering/Resolving]
  - Pathological fracture [Unknown]
  - Parathyroid cyst [Unknown]
  - Hyperparathyroidism secondary [Recovering/Resolving]
  - Osteosclerosis [Recovering/Resolving]
  - Intervertebral disc disorder [Recovering/Resolving]
